FAERS Safety Report 7055311-0 (Version None)
Quarter: 2010Q4

REPORT INFORMATION
  Report Type: 
  Country: None (occurrence: None)
  Receive Date: 20101021
  Receipt Date: 20101018
  Transmission Date: 20110411
  Serious: Yes (Life-Threatening, Hospitalization, Other)
  Sender: FDA-Public Use
  Company Number: NZ-ELI_LILLY_AND_COMPANY-NZ201007003504

PATIENT
  Sex: Male

DRUGS (6)
  1. HUMALOG MIX 75/25 [Suspect]
     Indication: TYPE 2 DIABETES MELLITUS
     Dosage: 35 U, UNKNOWN
     Route: 065
  2. HUMALOG MIX 75/25 [Suspect]
     Dosage: 20 U, UNKNOWN
  3. HUMALOG [Suspect]
     Indication: TYPE 2 DIABETES MELLITUS
     Dosage: UNK, AS NEEDED
     Route: 065
     Dates: start: 20100630, end: 20100701
  4. ASPIRIN [Concomitant]
     Dosage: 100 D/F, UNK
     Route: 048
  5. CLOPIDOGREL [Concomitant]
     Dosage: 75 D/F, DAILY (1/D)
  6. ACCUPRIL [Concomitant]
     Dosage: 10 D/F, DAILY (1/D)

REACTIONS (4)
  - ANGINA PECTORIS [None]
  - ELECTROCARDIOGRAM ST SEGMENT ELEVATION [None]
  - HYPOGLYCAEMIA [None]
  - WRONG DRUG ADMINISTERED [None]
